FAERS Safety Report 23767354 (Version 3)
Quarter: 2024Q3

REPORT INFORMATION
  Report Type: Spontaneous
  Country: US (occurrence: US)
  Receive Date: 20240422
  Receipt Date: 20240712
  Transmission Date: 20241016
  Serious: Yes (Other)
  Sender: GLAXOSMITHKLINE
  Company Number: US-GLAXOSMITHKLINE-US2024048064

PATIENT

DRUGS (1)
  1. BENLYSTA [Suspect]
     Active Substance: BELIMUMAB
     Indication: Systemic lupus erythematosus
     Dosage: 200 MG/ML, WE
     Dates: start: 20240324

REACTIONS (12)
  - Systemic lupus erythematosus [Unknown]
  - Fatigue [Recovered/Resolved]
  - Arthralgia [Unknown]
  - Joint swelling [Not Recovered/Not Resolved]
  - Musculoskeletal discomfort [Unknown]
  - Nodule [Recovering/Resolving]
  - Hypoaesthesia [Not Recovered/Not Resolved]
  - Stress [Unknown]
  - Rhinorrhoea [Unknown]
  - Pain in extremity [Recovering/Resolving]
  - Somnolence [Unknown]
  - Blood pressure increased [Unknown]
